FAERS Safety Report 9468461 (Version 1)
Quarter: 2013Q3

REPORT INFORMATION
  Report Type: Spontaneous
  Country: US (occurrence: US)
  Receive Date: 20130821
  Receipt Date: 20130821
  Transmission Date: 20140515
  Serious: Yes (Other)
  Sender: FDA-Public Use
  Company Number: US-GLAXOSMITHKLINE-A1038163A

PATIENT
  Sex: Male

DRUGS (2)
  1. NICODERM CQ 21MG [Suspect]
     Indication: SMOKING CESSATION THERAPY
     Route: 062
  2. NICORETTE NICOTINE POLACRILEX LOZENGE [Suspect]
     Indication: SMOKING CESSATION THERAPY
     Route: 002

REACTIONS (6)
  - Myocardial infarction [Unknown]
  - Cerebrovascular accident [Unknown]
  - Drug ineffective [Unknown]
  - Toothache [Unknown]
  - Endodontic procedure [Unknown]
  - Anxiety [Unknown]
